FAERS Safety Report 5953486-5 (Version None)
Quarter: 2008Q4

REPORT INFORMATION
  Report Type: 
  Country: None (occurrence: None)
  Receive Date: 20081114
  Receipt Date: 20081104
  Transmission Date: 20090506
  Serious: Yes (Hospitalization)
  Sender: FDA-Public Use
  Company Number: DE-ROCHE-595540

PATIENT
  Age: 48 Year
  Sex: Female
  Weight: 76 kg

DRUGS (1)
  1. CAPECITABINE [Suspect]
     Dosage: DOSING REGIMEN REPORTED AS 2500 MG/M2/D, D1-14
     Route: 065
     Dates: start: 20070922, end: 20080107

REACTIONS (2)
  - OVERDOSE [None]
  - SURGERY [None]
